FAERS Safety Report 4802352-7 (Version None)
Quarter: 2005Q4

REPORT INFORMATION
  Report Type: 
  Country: None (occurrence: None)
  Receive Date: 20051012
  Receipt Date: 20051011
  Transmission Date: 20060501
  Serious: Yes (Other)
  Sender: FDA-Public Use
  Company Number: GBWYE042110OCT05

PATIENT
  Sex: Female

DRUGS (1)
  1. EFFEXOR [Suspect]

REACTIONS (1)
  - CATHETER RELATED COMPLICATION [None]
